FAERS Safety Report 25595198 (Version 1)
Quarter: 2025Q3

REPORT INFORMATION
  Report Type: Spontaneous
  Country: EU (occurrence: EU)
  Receive Date: 20250723
  Receipt Date: 20250723
  Transmission Date: 20251020
  Serious: Yes (Other)
  Sender: EMD SERONO INC
  Company Number: None

PATIENT
  Sex: Male
  Weight: 2 kg

DRUGS (8)
  1. METFORMIN HYDROCHLORIDE [Suspect]
     Active Substance: METFORMIN HYDROCHLORIDE
     Indication: Type 2 diabetes mellitus
  2. DIAZEPAM [Suspect]
     Active Substance: DIAZEPAM
     Indication: Alcoholism
  3. BACLOFEN [Suspect]
     Active Substance: BACLOFEN
     Indication: Alcoholism
  4. OXAZEPAM [Suspect]
     Active Substance: OXAZEPAM
     Indication: Alcoholism
  5. QUETIAPINE [Suspect]
     Active Substance: QUETIAPINE
     Indication: Alcoholism
  6. FLUOXETINE HYDROCHLORIDE [Suspect]
     Active Substance: FLUOXETINE HYDROCHLORIDE
     Indication: Alcoholism
  7. DISULFIRAM [Suspect]
     Active Substance: DISULFIRAM
     Indication: Alcoholism
  8. BUSPIRONE HYDROCHLORIDE [Suspect]
     Active Substance: BUSPIRONE HYDROCHLORIDE
     Indication: Alcoholism

REACTIONS (4)
  - Premature baby [Recovered/Resolved]
  - Neonatal respiratory distress [Unknown]
  - Hypotonia neonatal [Unknown]
  - Maternal exposure during pregnancy [Recovered/Resolved]

NARRATIVE: CASE EVENT DATE: 20240926
